FAERS Safety Report 8927410 (Version 1)
Quarter: 2012Q4

REPORT INFORMATION
  Report Type: 
  Country: IT (occurrence: IT)
  Receive Date: 20121127
  Receipt Date: 20121127
  Transmission Date: 20130627
  Serious: Yes (Life-Threatening, Hospitalization)
  Sender: FDA-Public Use
  Company Number: IT-ASTRAZENECA-2012SE89206

PATIENT
  Age: 24036 Day
  Sex: Female

DRUGS (6)
  1. SEROQUEL [Suspect]
     Indication: DEPRESSION
     Route: 048
  2. SEROQUEL [Suspect]
     Indication: DEPRESSION
     Dosage: 4.5 G SINGLE ADMINISTRATION
     Route: 048
     Dates: start: 20120916, end: 20120916
  3. TRAZODONE [Concomitant]
     Indication: DEPRESSION
  4. RAMIPRIL [Concomitant]
  5. CITALOPRAM [Concomitant]
     Indication: DEPRESSION
  6. CARDIOASPIRIN [Concomitant]

REACTIONS (4)
  - Intentional overdose [Unknown]
  - Suicide attempt [Not Recovered/Not Resolved]
  - Unresponsive to stimuli [Not Recovered/Not Resolved]
  - Sopor [Not Recovered/Not Resolved]
